FAERS Safety Report 16467151 (Version 3)
Quarter: 2019Q3

REPORT INFORMATION
  Report Type: Report from Study
  Country: US (occurrence: US)
  Receive Date: 20190624
  Receipt Date: 20190708
  Transmission Date: 20191004
  Serious: No
  Sender: FDA-Public Use
  Company Number: PHEH2019US026556

PATIENT
  Age: 30 Year
  Sex: Female

DRUGS (1)
  1. GILENYA [Suspect]
     Active Substance: FINGOLIMOD HYDROCHLORIDE
     Indication: MULTIPLE SCLEROSIS
     Dosage: 0.5 MG, QD
     Route: 048
     Dates: start: 20190619

REACTIONS (12)
  - Vomiting [Unknown]
  - Viral infection [Unknown]
  - Gastrointestinal disorder [Unknown]
  - Malaise [Unknown]
  - Fatigue [Unknown]
  - Cold sweat [Unknown]
  - Headache [Not Recovered/Not Resolved]
  - Nausea [Unknown]
  - Feeling cold [Unknown]
  - Abdominal pain [Unknown]
  - Diarrhoea [Not Recovered/Not Resolved]
  - Pharyngitis [Unknown]

NARRATIVE: CASE EVENT DATE: 20190619
